FAERS Safety Report 5501504-0 (Version None)
Quarter: 2007Q4

REPORT INFORMATION
  Report Type: 
  Country: None (occurrence: None)
  Receive Date: 20071026
  Receipt Date: 20071012
  Transmission Date: 20080405
  Serious: Yes (Other)
  Sender: FDA-Public Use
  Company Number: 100#03#2007-04030

PATIENT
  Age: 2 Year
  Sex: Female

DRUGS (2)
  1. CARBOPLATIN [Suspect]
     Indication: RETINOBLASTOMA BILATERAL
     Dosage: 160MG/M2 PARENTERAL; 160MG/M2 (CUMULATIVE DOSE: 4000MG/M2)
     Route: 051
  2. ETOPOSIDE [Suspect]
     Indication: RETINOBLASTOMA BILATERAL
     Dosage: 100MG/M2 (CUMULATIVE DOSE: 2500MG/M2)

REACTIONS (3)
  - ACUTE MYELOID LEUKAEMIA [None]
  - AUTOLOGOUS BONE MARROW TRANSPLANTATION THERAPY [None]
  - DIARRHOEA [None]
